FAERS Safety Report 10238510 (Version 1)
Quarter: 2014Q2

REPORT INFORMATION
  Report Type: Spontaneous
  Country: BR (occurrence: BR)
  Receive Date: 20140616
  Receipt Date: 20140616
  Transmission Date: 20141212
  Serious: Yes (Other)
  Sender: FDA-Public Use
  Company Number: BR-SA-2014SA076080

PATIENT
  Age: 65 Year
  Sex: Female

DRUGS (3)
  1. ARAVA [Suspect]
     Indication: PRODUCT USED FOR UNKNOWN INDICATION
     Route: 065
     Dates: end: 20140520
  2. DENOSUMAB [Suspect]
     Indication: OSTEOPOROSIS
     Route: 058
     Dates: start: 2012, end: 20140520
  3. GOLIMUMAB [Suspect]
     Indication: RHEUMATOID ARTHRITIS
     Route: 058
     Dates: end: 20140520

REACTIONS (1)
  - Pemphigus [Not Recovered/Not Resolved]
